FAERS Safety Report 24112107 (Version 1)
Quarter: 2024Q3

REPORT INFORMATION
  Report Type: Report from Study
  Country: US (occurrence: US)
  Receive Date: 20240719
  Receipt Date: 20240719
  Transmission Date: 20241017
  Serious: Yes (Hospitalization, Other)
  Sender: ABBVIE
  Company Number: US-ABBVIE-5831090

PATIENT
  Sex: Female

DRUGS (1)
  1. HUMIRA [Suspect]
     Active Substance: ADALIMUMAB
     Indication: Rheumatoid arthritis
     Dosage: DRUG STOPPED IN 2021 OR 2022
     Route: 058

REACTIONS (6)
  - Cerebrovascular accident [Recovered/Resolved]
  - Cerebral thrombosis [Recovered/Resolved]
  - Thrombosis [Recovered/Resolved]
  - COVID-19 [Unknown]
  - Factor V Leiden mutation [Unknown]
  - Pain in extremity [Recovered/Resolved]

NARRATIVE: CASE EVENT DATE: 20210101
